FAERS Safety Report 20018609 (Version 1)
Quarter: 2021Q4

REPORT INFORMATION
  Report Type: Report from Study
  Country: US (occurrence: US)
  Receive Date: 20211101
  Receipt Date: 20211101
  Transmission Date: 20220303
  Serious: Yes (Other)
  Sender: FDA-Public Use
  Company Number: US-JNJFOC-20211049446

PATIENT
  Age: 65 Year
  Sex: Male

DRUGS (3)
  1. SPRAVATO [Suspect]
     Active Substance: ESKETAMINE
     Indication: Depression
     Dosage: 2 DOSES
     Dates: start: 20210917, end: 20210924
  2. SPRAVATO [Suspect]
     Active Substance: ESKETAMINE
     Dosage: 3 DOSES
     Dates: start: 20210930, end: 20211021
  3. SPRAVATO [Suspect]
     Active Substance: ESKETAMINE
     Dates: start: 20211015, end: 20211015

REACTIONS (3)
  - Hypertension [Recovered/Resolved]
  - Sedation [Recovered/Resolved]
  - Dissociation [Recovered/Resolved]

NARRATIVE: CASE EVENT DATE: 20211015
